FAERS Safety Report 7239232-6 (Version None)
Quarter: 2011Q1

REPORT INFORMATION
  Report Type: 
  Country: None (occurrence: None)
  Receive Date: 20110121
  Receipt Date: 20110119
  Transmission Date: 20110831
  Serious: Yes (Death)
  Sender: FDA-Public Use
  Company Number: IN-EISAI INC-E2090-01462-CLI-IN

PATIENT
  Sex: Male
  Weight: 29 kg

DRUGS (4)
  1. ANTI-DIARRHEAL [Concomitant]
     Route: 048
     Dates: start: 20101218, end: 20101220
  2. ZONISAMIDE [Suspect]
     Indication: EPILEPSY
     Route: 048
     Dates: start: 20100920, end: 20101221
  3. PHENYTOIN [Concomitant]
     Route: 048
     Dates: start: 20100426, end: 20101223
  4. CARBAMAZEPINE [Concomitant]
     Dosage: 200MG ONCE A DAY AND 300MG ONCE A DAY
     Route: 048
     Dates: start: 20100426, end: 20101223

REACTIONS (1)
  - STATUS EPILEPTICUS [None]
